FAERS Safety Report 4889351-4 (Version None)
Quarter: 2006Q1

REPORT INFORMATION
  Report Type: 
  Country: None (occurrence: None)
  Receive Date: 20060120
  Receipt Date: 20060120
  Transmission Date: 20060701
  Serious: Yes (Hospitalization)
  Sender: FDA-Public Use
  Company Number: None

PATIENT
  Sex: Female
  Weight: 94.8018 kg

DRUGS (9)
  1. IRINOTECAN HCL [Suspect]
     Indication: BREAST CANCER METASTATIC
     Dosage: 240 MG IVP
     Route: 042
     Dates: start: 20050510
  2. IRINOTECAN HCL [Suspect]
     Indication: BREAST CANCER METASTATIC
     Dosage: 240 MG IVP
     Route: 042
     Dates: start: 20051206
  3. DYCLOMINE (BENTYL) [Concomitant]
  4. FENTANYL PATCH (DURAGESIC) [Concomitant]
  5. PANTOPRAZOLE (PROTONIX) [Concomitant]
  6. EFFEXOR [Concomitant]
  7. LEVOTHYROXINE (SYNTHROID) [Concomitant]
  8. XANAX [Concomitant]
  9. REGLAN [Concomitant]

REACTIONS (6)
  - ABDOMINAL PAIN [None]
  - CRYING [None]
  - DEPRESSION [None]
  - GASTRIC HAEMORRHAGE [None]
  - IMPAIRED GASTRIC EMPTYING [None]
  - PAIN [None]
